FAERS Safety Report 9710346 (Version 1)
Quarter: 2013Q4

REPORT INFORMATION
  Report Type: Spontaneous
  Country: US (occurrence: US)
  Receive Date: 20131126
  Receipt Date: 20131126
  Transmission Date: 20140711
  Serious: No
  Sender: FDA-Public Use
  Company Number: US-BRISTOL-MYERS SQUIBB COMPANY-18809020

PATIENT
  Age: 63 Year
  Sex: Male

DRUGS (2)
  1. BYETTA [Suspect]
     Dosage: DOSE INCREASED:10 MCG/SQ INJ BID
     Route: 058
  2. METFORMIN HCL [Suspect]
     Route: 048

REACTIONS (2)
  - Hypoglycaemia [Unknown]
  - Weight decreased [Unknown]
